FAERS Safety Report 6102609-6 (Version None)
Quarter: 2009Q1

REPORT INFORMATION
  Report Type: 
  Country: None (occurrence: None)
  Receive Date: 20090304
  Receipt Date: 20081007
  Transmission Date: 20090719
  Serious: No
  Sender: FDA-Public Use
  Company Number: A0750794A

PATIENT
  Age: 81 Year
  Sex: Female

DRUGS (15)
  1. ROPINIROLE [Suspect]
     Indication: PARKINSON'S DISEASE
     Dosage: 2MG THREE TIMES PER DAY
     Route: 048
     Dates: start: 20080801
  2. VITAMIN AND MINERAL PRENATAL SUPPLEMENT W/ FOLIC ACID CAP [Concomitant]
  3. CITRACAL [Concomitant]
  4. NEURONTIN [Concomitant]
  5. SINEMET [Concomitant]
  6. CARBIDOPA [Concomitant]
  7. DIOVAN HCT [Concomitant]
  8. NIFEDIPINE [Concomitant]
  9. CELEXA [Concomitant]
  10. NAPROXEN [Concomitant]
  11. DARVOCET [Concomitant]
  12. GABAPENTIN [Concomitant]
  13. ASPIRIN [Concomitant]
  14. LEVOTHYROXINE SODIUM [Concomitant]
  15. UNKNOWN MEDICATION [Concomitant]

REACTIONS (7)
  - ABDOMINAL DISCOMFORT [None]
  - DIARRHOEA [None]
  - DRUG INEFFECTIVE [None]
  - INSOMNIA [None]
  - NIGHTMARE [None]
  - RESTLESSNESS [None]
  - TREMOR [None]
